FAERS Safety Report 6582214-8 (Version None)
Quarter: 2010Q1

REPORT INFORMATION
  Report Type: 
  Country: None (occurrence: None)
  Receive Date: 20100203
  Receipt Date: 20100118
  Transmission Date: 20100710
  Serious: Yes (Death, Hospitalization)
  Sender: FDA-Public Use
  Company Number: IMP_04762_2010

PATIENT
  Age: 19 Year
  Sex: Female

DRUGS (2)
  1. BUPROPION HCL [Suspect]
     Dosage: NOT THE PRESCRIBED AMOUNT ORAL
     Route: 048
  2. CLONAZEPAM [Suspect]
     Dosage: NOT THE PRESCRIBED AMOUNT ORAL
     Route: 048

REACTIONS (22)
  - ACUTE RESPIRATORY DISTRESS SYNDROME [None]
  - BLOOD CREATINE PHOSPHOKINASE INCREASED [None]
  - BLOOD PH INCREASED [None]
  - BLOOD POTASSIUM INCREASED [None]
  - BLOOD SODIUM INCREASED [None]
  - COMPLETED SUICIDE [None]
  - CONVULSION [None]
  - DEPRESSED LEVEL OF CONSCIOUSNESS [None]
  - ELECTROLYTE IMBALANCE [None]
  - HEPATIC NECROSIS [None]
  - HYPERGLYCAEMIA [None]
  - HYPOTENSION [None]
  - ISCHAEMIC HEPATITIS [None]
  - ORGANISING PNEUMONIA [None]
  - OVERDOSE [None]
  - PARALYSIS [None]
  - PCO2 INCREASED [None]
  - POISONING [None]
  - PULMONARY EMBOLISM [None]
  - SINUS TACHYCARDIA [None]
  - SKIN LACERATION [None]
  - SUBCUTANEOUS EMPHYSEMA [None]
